FAERS Safety Report 5514941-5 (Version None)
Quarter: 2007Q4

REPORT INFORMATION
  Report Type: 
  Country: None (occurrence: None)
  Receive Date: 20071113
  Receipt Date: 20061016
  Transmission Date: 20080405
  Serious: No
  Sender: FDA-Public Use
  Company Number: A0623716A

PATIENT
  Age: 66 Year
  Sex: Female

DRUGS (3)
  1. COREG [Suspect]
     Indication: HEART RATE INCREASED
     Dosage: 12.5MG TWICE PER DAY
     Route: 048
     Dates: start: 20060301
  2. VYTORIN [Concomitant]
  3. DIOVAN [Concomitant]

REACTIONS (1)
  - FATIGUE [None]
